FAERS Safety Report 11422973 (Version 1)
Quarter: 2015Q3

REPORT INFORMATION
  Report Type: Report from Study
  Country: US (occurrence: US)
  Receive Date: 20150827
  Receipt Date: 20150827
  Transmission Date: 20151125
  Serious: No
  Sender: FDA-Public Use
  Company Number: PHHY2014US134401

PATIENT
  Age: 47 Year
  Sex: Female

DRUGS (2)
  1. TOVIAZ [Concomitant]
     Active Substance: FESOTERODINE FUMARATE
     Indication: HYPERTONIC BLADDER
     Dosage: UNK
     Route: 065
     Dates: start: 20120927, end: 20130114
  2. GILENYA [Suspect]
     Active Substance: FINGOLIMOD HYDROCHLORIDE
     Indication: MULTIPLE SCLEROSIS
     Dosage: UNK, QD
     Route: 065

REACTIONS (10)
  - Bladder dysfunction [Unknown]
  - Anaemia [Unknown]
  - Lymphocyte count decreased [Unknown]
  - Eosinophil count decreased [Unknown]
  - White blood cell count decreased [Unknown]
  - Haemoglobin decreased [Unknown]
  - Neutrophil count decreased [Unknown]
  - Fatigue [Unknown]
  - Ear pain [Recovered/Resolved]
  - Asthenia [Unknown]

NARRATIVE: CASE EVENT DATE: 20120927
